APPROVED DRUG PRODUCT: RISPERIDONE
Active Ingredient: RISPERIDONE
Strength: 0.5MG
Dosage Form/Route: TABLET;ORAL
Application: A078187 | Product #002
Applicant: SYNTHON PHARMACEUTICALS INC
Approved: Oct 22, 2009 | RLD: No | RS: No | Type: DISCN